FAERS Safety Report 22219680 (Version 2)
Quarter: 2023Q2

REPORT INFORMATION
  Report Type: Spontaneous
  Country: ES (occurrence: ES)
  Receive Date: 20230417
  Receipt Date: 20230427
  Transmission Date: 20230721
  Serious: Yes (Death, Other)
  Sender: FDA-Public Use
  Company Number: ES-RECKITT BENCKISER HEALTHCARE INT LIMITED-RB-090391-2023

PATIENT
  Sex: Female

DRUGS (1)
  1. IBUPROFEN [Suspect]
     Active Substance: IBUPROFEN
     Indication: Abdominal pain upper
     Dosage: 2 DOSAGE FORM, QD
     Route: 065

REACTIONS (11)
  - Aortic dissection [Fatal]
  - Haemoptysis [Fatal]
  - Fatigue [Fatal]
  - Aorto-oesophageal fistula [Fatal]
  - Restlessness [Fatal]
  - Syncope [Fatal]
  - Ulcer [Fatal]
  - Dysphagia [Fatal]
  - Cardiac arrest [Fatal]
  - Hypovolaemic shock [Fatal]
  - Haematemesis [Fatal]
